FAERS Safety Report 14753540 (Version 3)
Quarter: 2018Q2

REPORT INFORMATION
  Report Type: Report from Study
  Country: FR (occurrence: FR)
  Receive Date: 20180412
  Receipt Date: 20180608
  Transmission Date: 20180711
  Serious: Yes (Death)
  Sender: FDA-Public Use
  Company Number: FR-PFIZER INC-2018149861

PATIENT

DRUGS (16)
  1. MESNA. [Suspect]
     Active Substance: MESNA
     Indication: NON-HODGKIN^S LYMPHOMA
     Dosage: INFUSED BEFORE, AND 4 AND 8 H AFTER EACH
  2. METHOTREXATE. [Concomitant]
     Active Substance: METHOTREXATE
     Indication: PROPHYLAXIS
     Dosage: 12 MG/M2, CYCLIC (FOUR INTRA-THECAL)
     Route: 037
  3. CIPROFLOXACIN. [Concomitant]
     Active Substance: CIPROFLOXACIN
     Indication: ANTIBIOTIC PROPHYLAXIS
     Dosage: 750 MG, 2X/DAY
     Route: 048
  4. ETOPOSIDE. [Suspect]
     Active Substance: ETOPOSIDE
     Indication: NON-HODGKIN^S LYMPHOMA
     Dosage: 250 MG/M2, CYCLIC ( DAILY D 1 AND D 2
  5. CYCLOPHOSPHAMIDE. [Suspect]
     Active Substance: CYCLOPHOSPHAMIDE
     Dosage: 4000 MG/M2, CYCLIC (C2 AT D 1)
  6. PREDNISONE. [Suspect]
     Active Substance: PREDNISONE
     Dosage: 2 MG/KG, CYCLIC (C1, C2, C3, C4, DAILY,D1 TO D 4)
  7. DOXORUBICIN HCL [Suspect]
     Active Substance: DOXORUBICIN HYDROCHLORIDE
     Indication: NON-HODGKIN^S LYMPHOMA
     Dosage: 75 MG/M2, (C1, C2 AT D 1)
  8. CISPLATIN. [Suspect]
     Active Substance: CISPLATIN
     Indication: NON-HODGKIN^S LYMPHOMA
     Dosage: 100 MG/M2, CYCLIC (AT D 1)
  9. PREDNISONE. [Suspect]
     Active Substance: PREDNISONE
     Indication: NON-HODGKIN^S LYMPHOMA
     Dosage: 2 MG/KG, CYCLIC (DAILY ,D 1 TO D 4)
  10. CYCLOPHOSPHAMIDE. [Suspect]
     Active Substance: CYCLOPHOSPHAMIDE
     Indication: NON-HODGKIN^S LYMPHOMA
     Dosage: 500 MG/M2, DAY (D) 1
  11. CYCLOPHOSPHAMIDE. [Suspect]
     Active Substance: CYCLOPHOSPHAMIDE
     Dosage: 6000 MG/M2, CYCLIC (C1 AT D 1)
  12. CYCLOPHOSPHAMIDE. [Suspect]
     Active Substance: CYCLOPHOSPHAMIDE
     Dosage: 4000 MG/M2, CYCLIC (C3, C4 AT D 1)
  13. FILGRASTIM [Concomitant]
     Active Substance: FILGRASTIM
     Indication: NON-HODGKIN^S LYMPHOMA
     Dosage: 300 UG, DAILY (STARTED AT D 6 FOR A MINIMUM OF 7 DAYS)
  14. PENICILLIN G /00000901/ [Concomitant]
     Active Substance: PENICILLIN G
     Indication: PROPHYLAXIS
     Dosage: UNK, 2X/DAY ( 1 X10^6)
     Route: 048
  15. VINCRISTINE SULFATE. [Suspect]
     Active Substance: VINCRISTINE SULFATE
     Indication: NON-HODGKIN^S LYMPHOMA
     Dosage: 2 MG, CYCLIC ( AT D 1)
  16. DOXORUBICIN HCL [Suspect]
     Active Substance: DOXORUBICIN HYDROCHLORIDE
     Dosage: 75 MG/M2, (C3, C4 AAT D 1)

REACTIONS (2)
  - Acute respiratory distress syndrome [Fatal]
  - Interstitial lung disease [Fatal]
